FAERS Safety Report 8357197-0 (Version None)
Quarter: 2012Q2

REPORT INFORMATION
  Report Type: 
  Country: None (occurrence: None)
  Receive Date: 20120514
  Receipt Date: 20120508
  Transmission Date: 20120825
  Serious: Yes (Hospitalization, Other)
  Sender: FDA-Public Use
  Company Number: US-BAYER-2011-090626

PATIENT
  Age: 37 Year
  Sex: Female
  Weight: 88.435 kg

DRUGS (10)
  1. YAZ [Suspect]
     Indication: MIGRAINE
  2. EFFEXOR [Concomitant]
     Indication: DEPRESSION
     Dosage: UNK
     Dates: start: 20050101
  3. YAZ [Suspect]
     Indication: PREMENSTRUAL SYNDROME
     Dosage: 1 TABLET PER DAY
     Dates: start: 20090701, end: 20090801
  4. YAZ [Suspect]
  5. CLARITIN [Concomitant]
     Indication: MULTIPLE ALLERGIES
     Dosage: UNK
     Dates: start: 20060101, end: 20110101
  6. SINGULAIR [Concomitant]
     Indication: MULTIPLE ALLERGIES
     Dosage: UNK
     Dates: start: 20060101, end: 20110101
  7. MAXALT [Concomitant]
     Dosage: UNK
     Dates: start: 20090101
  8. DURADRIN [Concomitant]
     Dosage: UNK
     Dates: start: 20090101
  9. ELAVIL [Concomitant]
     Indication: DEPRESSION
     Dosage: UNK
     Dates: start: 20060101, end: 20110101
  10. MIDRIN [Concomitant]
     Dosage: UNK
     Dates: start: 20090101

REACTIONS (11)
  - PULMONARY EMBOLISM [None]
  - CHOLELITHIASIS [None]
  - PAIN [None]
  - PSYCHOLOGICAL TRAUMA [None]
  - PULMONARY INFARCTION [None]
  - ANXIETY [None]
  - BIPOLAR DISORDER [None]
  - MOOD SWINGS [None]
  - EMOTIONAL DISTRESS [None]
  - DEPRESSION [None]
  - CARDIAC DISORDER [None]
